FAERS Safety Report 13745613 (Version 2)
Quarter: 2017Q3

REPORT INFORMATION
  Report Type: Spontaneous
  Country: FR (occurrence: FR)
  Receive Date: 20170712
  Receipt Date: 20170717
  Transmission Date: 20171127
  Serious: Yes (Hospitalization, Other)
  Sender: FDA-Public Use
  Company Number: FR-PFIZER INC-2017300145

PATIENT
  Age: 79 Year
  Sex: Male

DRUGS (6)
  1. COUMADINE [Concomitant]
     Active Substance: WARFARIN SODIUM
     Dosage: UNK
     Dates: end: 20170524
  2. MESTINON [Suspect]
     Active Substance: PYRIDOSTIGMINE BROMIDE
     Dosage: 60 MG, 2X/DAY
     Route: 048
     Dates: start: 20170526, end: 20170529
  3. RISPERDAL [Suspect]
     Active Substance: RISPERIDONE
     Dosage: 0.25 ML, DAILY
     Route: 048
     Dates: start: 20170506, end: 20170518
  4. MESTINON [Suspect]
     Active Substance: PYRIDOSTIGMINE BROMIDE
     Dosage: 60 MG, 2X/DAY (1 MORNING AND EVENING)
     Route: 048
     Dates: start: 20170517, end: 20170518
  5. MESTINON [Suspect]
     Active Substance: PYRIDOSTIGMINE BROMIDE
     Dosage: 60 MG, 2X/DAY
     Route: 048
     Dates: start: 20170519, end: 20170523
  6. CORDARONE [Suspect]
     Active Substance: AMIODARONE HYDROCHLORIDE
     Indication: ATRIAL FIBRILLATION
     Dosage: 200 MG, DAILY
     Route: 048
     Dates: end: 20170523

REACTIONS (3)
  - Electrocardiogram QT prolonged [Recovered/Resolved]
  - Hypokalaemia [Recovered/Resolved]
  - Intestinal pseudo-obstruction [Unknown]

NARRATIVE: CASE EVENT DATE: 20170502
